FAERS Safety Report 5157549-6 (Version None)
Quarter: 2006Q4

REPORT INFORMATION
  Report Type: 
  Country: None (occurrence: None)
  Receive Date: 20061127
  Receipt Date: 20061120
  Transmission Date: 20070319
  Serious: Yes (Other)
  Sender: FDA-Public Use
  Company Number: NL-GLAXOSMITHKLINE-B0447698A

PATIENT
  Age: 55 Year
  Sex: Male
  Weight: 80 kg

DRUGS (2)
  1. MALARONE [Suspect]
     Indication: MALARIA PROPHYLAXIS
     Dosage: 1TAB PER DAY
     Dates: start: 20061029
  2. SIMVASTATIN [Concomitant]
     Dosage: 40MG PER DAY
     Dates: start: 20040101

REACTIONS (4)
  - CONVULSION [None]
  - EPILEPSY [None]
  - TONGUE DISORDER [None]
  - TOOTH DISORDER [None]
